FAERS Safety Report 5253621-0 (Version None)
Quarter: 2007Q1

REPORT INFORMATION
  Report Type: 
  Country: None (occurrence: None)
  Receive Date: 20070301
  Receipt Date: 20070220
  Transmission Date: 20070707
  Serious: Yes (Hospitalization)
  Sender: FDA-Public Use
  Company Number: GB-PFIZER INC-2007010052

PATIENT
  Age: 64 Year
  Sex: Female
  Weight: 89 kg

DRUGS (5)
  1. LIPITOR [Suspect]
  2. ACETAMINOPHEN W/ CODEINE [Concomitant]
     Route: 048
  3. MEBEVERINE [Concomitant]
     Route: 048
     Dates: start: 20040101
  4. BECOTIDE [Concomitant]
     Route: 055
     Dates: start: 20020101
  5. SALBUTAMOL [Concomitant]
     Route: 055
     Dates: start: 20000101

REACTIONS (5)
  - AMNESIA [None]
  - ANXIETY [None]
  - CONFUSIONAL STATE [None]
  - ENCEPHALITIS VIRAL [None]
  - TRANSIENT ISCHAEMIC ATTACK [None]
